FAERS Safety Report 20750185 (Version 5)
Quarter: 2025Q2

REPORT INFORMATION
  Report Type: Spontaneous
  Country: US (occurrence: US)
  Receive Date: 20220426
  Receipt Date: 20250502
  Transmission Date: 20250716
  Serious: Yes (Other)
  Sender: PFIZER
  Company Number: US-PFIZER INC-202101302388

PATIENT
  Age: 63 Year
  Sex: Female

DRUGS (1)
  1. XELJANZ [Suspect]
     Active Substance: TOFACITINIB CITRATE
     Indication: Rheumatoid arthritis
     Dosage: 5 MG, 2X/DAY
     Route: 048
     Dates: start: 201511

REACTIONS (8)
  - Diabetes mellitus [Unknown]
  - Bronchitis [Recovered/Resolved]
  - Herpes zoster [Unknown]
  - Malaise [Unknown]
  - Product dose omission in error [Unknown]
  - Blood cholesterol increased [Unknown]
  - Sinusitis [Recovered/Resolved]
  - Infection [Recovered/Resolved]

NARRATIVE: CASE EVENT DATE: 20150101
